FAERS Safety Report 22349870 (Version 1)
Quarter: 2023Q2

REPORT INFORMATION
  Report Type: Spontaneous
  Country: US (occurrence: US)
  Receive Date: 20230522
  Receipt Date: 20230522
  Transmission Date: 20230722
  Serious: Yes (Other)
  Sender: FDA-Public Use
  Company Number: US-AMGEN-USASP2023085194

PATIENT
  Sex: Female

DRUGS (1)
  1. PROLIA [Suspect]
     Active Substance: DENOSUMAB
     Indication: Product used for unknown indication
     Dosage: UNK
     Route: 065
     Dates: start: 20221104

REACTIONS (5)
  - Lung neoplasm malignant [Unknown]
  - Gastritis [Unknown]
  - Abdominal pain [Unknown]
  - Pain [Unknown]
  - Musculoskeletal pain [Unknown]
